FAERS Safety Report 6500070-0 (Version None)
Quarter: 2009Q4

REPORT INFORMATION
  Report Type: 
  Country: None (occurrence: None)
  Receive Date: 20091216
  Receipt Date: 20091207
  Transmission Date: 20100525
  Serious: Yes (Hospitalization, Other)
  Sender: FDA-Public Use
  Company Number: US-JNJFOC-20091202618

PATIENT
  Sex: Female
  Weight: 66.68 kg

DRUGS (2)
  1. SANDOZ FENTANYL TRANSDERMAL SYSTEM [Suspect]
     Indication: HEADACHE
     Route: 062
  2. UNKNOWN MEDICATION [Concomitant]

REACTIONS (1)
  - PULMONARY EMBOLISM [None]
